FAERS Safety Report 8463557-X (Version None)
Quarter: 2012Q2

REPORT INFORMATION
  Report Type: 
  Country: None (occurrence: None)
  Receive Date: 20120625
  Receipt Date: 20120620
  Transmission Date: 20120825
  Serious: Yes (Disabling, Other)
  Sender: FDA-Public Use
  Company Number: US-PFIZER INC-2012080374

PATIENT
  Sex: Male

DRUGS (13)
  1. AMITRIPTYLINE [Concomitant]
     Indication: DEPRESSION
     Dosage: 25 MG, UNK
     Dates: start: 20080101, end: 20100101
  2. TRAMADOL [Concomitant]
     Indication: PAIN
     Dosage: UNK
     Dates: start: 20080101, end: 20100101
  3. LITHIUM [Concomitant]
     Indication: BIPOLAR DISORDER
     Dosage: 300 MG, UNK
     Dates: start: 20080101, end: 20110101
  4. CHANTIX [Suspect]
     Indication: SMOKING CESSATION THERAPY
     Dosage: STARTING MONTH PACK
     Route: 048
     Dates: start: 20090128, end: 20090320
  5. NAPROXEN [Concomitant]
     Indication: PAIN
     Dosage: UNK
     Dates: start: 20050101, end: 20110101
  6. CYCLOBENZAPRINE [Concomitant]
     Indication: MUSCLE RELAXANT THERAPY
     Dosage: UNK
     Dates: start: 20060101, end: 20100101
  7. MECLIZINE [Concomitant]
     Indication: NAUSEA
     Dosage: UNK
     Dates: start: 20060101, end: 20110101
  8. SEROQUEL [Concomitant]
     Indication: BIPOLAR DISORDER
     Dosage: 200 MG, UNK
     Dates: start: 20080101, end: 20100101
  9. CHANTIX [Suspect]
     Dosage: STARTING MONTH PACK
     Route: 048
     Dates: start: 20091211, end: 20091229
  10. OMEPRAZOLE [Concomitant]
     Indication: GASTROOESOPHAGEAL REFLUX DISEASE
     Dosage: UNK
     Dates: start: 20080101, end: 20110101
  11. CHANTIX [Suspect]
     Dosage: 1MG CONTINUING MONTH PACK
     Route: 048
     Dates: start: 20100308, end: 20100315
  12. OXYCODONE [Concomitant]
     Indication: PAIN
     Dosage: UNK
     Dates: start: 20060101, end: 20100101
  13. METHYLPREDNISOLONE [Concomitant]
     Indication: INFLAMMATION
     Dosage: UNK
     Dates: start: 20060101, end: 20110101

REACTIONS (4)
  - SUICIDAL IDEATION [None]
  - BIPOLAR DISORDER [None]
  - DEPRESSION [None]
  - ANXIETY [None]
